FAERS Safety Report 24191173 (Version 2)
Quarter: 2024Q3

REPORT INFORMATION
  Report Type: Spontaneous
  Country: TH (occurrence: TH)
  Receive Date: 20240808
  Receipt Date: 20240809
  Transmission Date: 20241017
  Serious: Yes (Other)
  Sender: NOVARTIS
  Company Number: TH-002147023-NVSC2024TH156262

PATIENT
  Age: 49 Year
  Sex: Male
  Weight: 96 kg

DRUGS (31)
  1. SACUBITRIL\VALSARTAN [Suspect]
     Active Substance: SACUBITRIL\VALSARTAN
     Indication: Heart failure with reduced ejection fraction
     Dosage: UNK (100) (0.5X2)
     Route: 065
     Dates: start: 202403
  2. SACUBITRIL\VALSARTAN [Suspect]
     Active Substance: SACUBITRIL\VALSARTAN
     Dosage: UNK (200) (0.5X2)
     Route: 065
     Dates: start: 202405
  3. SACUBITRIL\VALSARTAN [Suspect]
     Active Substance: SACUBITRIL\VALSARTAN
     Dosage: UNK (200) (0.5X2)
     Route: 065
     Dates: start: 202407
  4. ASPIRIN [Concomitant]
     Active Substance: ASPIRIN
     Indication: Product used for unknown indication
     Dosage: UNK UNK, QD (81)
     Route: 065
     Dates: start: 202311
  5. ASPIRIN [Concomitant]
     Active Substance: ASPIRIN
     Dosage: UNK, QD (81)
     Route: 065
     Dates: start: 202401
  6. ASPIRIN [Concomitant]
     Active Substance: ASPIRIN
     Dosage: UNK, QD (81)
     Route: 065
     Dates: start: 202403
  7. ASPIRIN [Concomitant]
     Active Substance: ASPIRIN
     Dosage: UNK, QD (81)
     Route: 065
     Dates: start: 202405
  8. ASPIRIN [Concomitant]
     Active Substance: ASPIRIN
     Dosage: UNK, QD (81)
     Route: 065
     Dates: start: 202407
  9. ATORVASTATIN [Concomitant]
     Active Substance: ATORVASTATIN
     Indication: Product used for unknown indication
     Dosage: UNK UNK, QHS (40)
     Route: 065
     Dates: start: 202311
  10. ATORVASTATIN [Concomitant]
     Active Substance: ATORVASTATIN
     Dosage: UNK, QHS (40)
     Route: 065
     Dates: start: 202401
  11. ATORVASTATIN [Concomitant]
     Active Substance: ATORVASTATIN
     Dosage: UNK, QHS (40)
     Route: 065
     Dates: start: 202403
  12. ATORVASTATIN [Concomitant]
     Active Substance: ATORVASTATIN
     Dosage: UNK, QHS (40)
     Route: 065
     Dates: start: 202405
  13. ATORVASTATIN [Concomitant]
     Active Substance: ATORVASTATIN
     Dosage: UNK, QHS (40)
     Route: 065
     Dates: start: 202407
  14. CARVEDILOL [Concomitant]
     Active Substance: CARVEDILOL
     Indication: Product used for unknown indication
     Dosage: UNK (6.25) (0.5X2)
     Route: 065
     Dates: start: 202311
  15. CARVEDILOL [Concomitant]
     Active Substance: CARVEDILOL
     Dosage: UNK (6.25) (1X2)
     Route: 065
     Dates: start: 202311
  16. CARVEDILOL [Concomitant]
     Active Substance: CARVEDILOL
     Dosage: UNK (6.25) (1X2)
     Route: 065
     Dates: start: 202401
  17. CARVEDILOL [Concomitant]
     Active Substance: CARVEDILOL
     Dosage: UNK (6.25) (1X2)
     Route: 065
     Dates: start: 202403
  18. CARVEDILOL [Concomitant]
     Active Substance: CARVEDILOL
     Dosage: UNK (6.25) (1X2)
     Route: 065
     Dates: start: 202405
  19. CARVEDILOL [Concomitant]
     Active Substance: CARVEDILOL
     Dosage: UNK (12.5) (1X2)
     Route: 065
     Dates: start: 202407
  20. SPIRONOLACTONE [Concomitant]
     Active Substance: SPIRONOLACTONE
     Indication: Product used for unknown indication
     Dosage: UNK, QD (25)
     Route: 065
     Dates: start: 202311
  21. SPIRONOLACTONE [Concomitant]
     Active Substance: SPIRONOLACTONE
     Dosage: UNK, QD (25)
     Route: 065
     Dates: start: 202401
  22. SPIRONOLACTONE [Concomitant]
     Active Substance: SPIRONOLACTONE
     Dosage: UNK, BID (25)
     Route: 065
     Dates: start: 202401
  23. SPIRONOLACTONE [Concomitant]
     Active Substance: SPIRONOLACTONE
     Dosage: UNK, BID (25)
     Route: 065
     Dates: start: 202403
  24. SPIRONOLACTONE [Concomitant]
     Active Substance: SPIRONOLACTONE
     Dosage: UNK, BID (25)
     Route: 065
     Dates: start: 202405
  25. SPIRONOLACTONE [Concomitant]
     Active Substance: SPIRONOLACTONE
     Dosage: UNK, BID (25)
     Route: 065
     Dates: start: 202407
  26. DAPAGLIFLOZIN [Concomitant]
     Active Substance: DAPAGLIFLOZIN
     Indication: Product used for unknown indication
     Dosage: UNK, QD (10)
     Route: 065
     Dates: start: 202401
  27. DAPAGLIFLOZIN [Concomitant]
     Active Substance: DAPAGLIFLOZIN
     Dosage: UNK, QD (10)
     Route: 065
     Dates: start: 202403
  28. DAPAGLIFLOZIN [Concomitant]
     Active Substance: DAPAGLIFLOZIN
     Dosage: UNK, QD (10)
     Route: 065
     Dates: start: 202405
  29. DAPAGLIFLOZIN [Concomitant]
     Active Substance: DAPAGLIFLOZIN
     Dosage: UNK, QD (10)
     Route: 065
     Dates: start: 202407
  30. HYDRALAZINE [Concomitant]
     Active Substance: HYDRALAZINE HYDROCHLORIDE
     Indication: Product used for unknown indication
     Dosage: UNK (25) (1X3)
     Route: 065
     Dates: start: 202311
  31. ISMO [Concomitant]
     Active Substance: ISOSORBIDE MONONITRATE
     Indication: Product used for unknown indication
     Dosage: UNK (20) (1X2)
     Route: 065
     Dates: start: 202311, end: 202401

REACTIONS (3)
  - Mitral valve incompetence [Unknown]
  - Weight increased [Unknown]
  - Wrong technique in product usage process [Unknown]
